FAERS Safety Report 16139740 (Version 1)
Quarter: 2019Q2

REPORT INFORMATION
  Report Type: Spontaneous
  Country: UA (occurrence: UA)
  Receive Date: 20190401
  Receipt Date: 20190401
  Transmission Date: 20190711
  Serious: Yes (Other)
  Sender: FDA-Public Use
  Company Number: UA-BAYER-2019-054887

PATIENT
  Age: 30 Year
  Sex: Female

DRUGS (2)
  1. JEANINE [Suspect]
     Active Substance: DIENOGEST\ETHINYL ESTRADIOL
     Indication: CONTRACEPTION
     Dosage: UNK
     Dates: start: 20190219
  2. MIRENA [Suspect]
     Active Substance: LEVONORGESTREL
     Indication: CONTRACEPTION
     Dosage: 20 MCG/24HR, CONT
     Route: 015
     Dates: end: 2017

REACTIONS (2)
  - Scleroderma [None]
  - Dizziness [None]

NARRATIVE: CASE EVENT DATE: 20190219
